FAERS Safety Report 7340761-5 (Version None)
Quarter: 2011Q1

REPORT INFORMATION
  Report Type: 
  Country: None (occurrence: None)
  Receive Date: 20110309
  Receipt Date: 20110301
  Transmission Date: 20110831
  Serious: Yes (Hospitalization, Other)
  Sender: FDA-Public Use
  Company Number: JP-ROCHE-763820

PATIENT
  Age: 58 Year
  Sex: Female

DRUGS (10)
  1. XELODA [Suspect]
     Indication: COLON CANCER
     Dosage: DOSAGE IS UNCERTAIN
     Route: 048
     Dates: start: 20100921, end: 20110222
  2. 5-FU [Concomitant]
     Dosage: DOSAGE IS UNCERTAIN
     Route: 041
     Dates: start: 20090317
  3. AVASTIN [Suspect]
     Route: 041
     Dates: start: 20100921, end: 20110222
  4. AVASTIN [Suspect]
     Indication: COLON CANCER
     Route: 041
     Dates: start: 20090317
  5. ELPLAT [Suspect]
     Indication: COLON CANCER
     Dosage: DOSAGE IS UNCERTAIN
     Route: 041
     Dates: start: 20100921, end: 20110222
  6. PROTECADIN [Suspect]
     Dosage: DOSAGE IS UNCERTAIN.
     Route: 048
  7. IRINOTECAN HYDROCHLORIDE [Concomitant]
     Dosage: DOSAGE IS UNCERTAIN
     Route: 041
     Dates: start: 20090317
  8. 5-FU [Concomitant]
     Indication: COLON CANCER
     Dosage: DOSAGE IS UNCERTAIN
     Route: 040
     Dates: start: 20090317
  9. DIOVAN [Suspect]
     Dosage: DOSAGE IS UNCERTAIN.
     Route: 048
  10. LEUCOVORIN CALCIUM [Concomitant]
     Dosage: DOSAGE IS UNCERTAIN.
     Route: 041
     Dates: start: 20090317

REACTIONS (2)
  - RENAL FAILURE ACUTE [None]
  - DIARRHOEA [None]
